FAERS Safety Report 13616952 (Version 1)
Quarter: 2017Q2

REPORT INFORMATION
  Report Type: Spontaneous
  Country: US (occurrence: US)
  Receive Date: 20170606
  Receipt Date: 20170606
  Transmission Date: 20170830
  Serious: Yes (Other)
  Sender: FDA-Public Use
  Company Number: US-SA-2016SA134644

PATIENT
  Age: 74 Year
  Sex: Female

DRUGS (2)
  1. SOLOSTAR [Suspect]
     Active Substance: DEVICE
     Indication: TYPE 2 DIABETES MELLITUS
     Dates: start: 2015
  2. LANTUS SOLOSTAR [Suspect]
     Active Substance: INSULIN GLARGINE
     Indication: TYPE 2 DIABETES MELLITUS
     Dosage: DOSE:95 UNIT(S)
     Route: 065
     Dates: start: 2015

REACTIONS (7)
  - Diabetic coma [Unknown]
  - Device issue [Unknown]
  - Visual impairment [Unknown]
  - Product use issue [Unknown]
  - Hypotonia [Unknown]
  - Hyperglycaemia [Unknown]
  - Cataract [Unknown]
